FAERS Safety Report 6095289-X (Version None)
Quarter: 2009Q1

REPORT INFORMATION
  Report Type: 
  Country: None (occurrence: None)
  Receive Date: 20090227
  Receipt Date: 20080229
  Transmission Date: 20090719
  Serious: Yes (Life-Threatening, Other)
  Sender: FDA-Public Use
  Company Number: A0712740A

PATIENT
  Age: 42 Year
  Sex: Female

DRUGS (3)
  1. LAMICTAL [Suspect]
     Indication: BIPOLAR DISORDER
     Dosage: 200MG PER DAY
     Route: 048
     Dates: start: 20071205, end: 20080213
  2. CYMBALTA [Concomitant]
  3. SUBOXONE [Concomitant]

REACTIONS (3)
  - RASH [None]
  - RASH PRURITIC [None]
  - STEVENS-JOHNSON SYNDROME [None]
